APPROVED DRUG PRODUCT: CHLORZOXAZONE
Active Ingredient: CHLORZOXAZONE
Strength: 500MG
Dosage Form/Route: TABLET;ORAL
Application: A213126 | Product #002 | TE Code: AA
Applicant: RISING PHARMA HOLDINGS INC
Approved: Apr 5, 2022 | RLD: No | RS: No | Type: RX